FAERS Safety Report 7859990-7 (Version None)
Quarter: 2011Q4

REPORT INFORMATION
  Report Type: 
  Country: None (occurrence: None)
  Receive Date: 20111025
  Receipt Date: 20111013
  Transmission Date: 20120403
  Serious: Yes (Other)
  Sender: FDA-Public Use
  Company Number: CIP11002703

PATIENT
  Age: 87 Year
  Sex: Female

DRUGS (2)
  1. FOSAMAX [Suspect]
     Dosage: ORAL
     Route: 048
  2. ACTONEL [Suspect]
     Dosage: ORAL
     Route: 048

REACTIONS (3)
  - KNEE ARTHROPLASTY [None]
  - FEELING ABNORMAL [None]
  - QUALITY OF LIFE DECREASED [None]
